FAERS Safety Report 4536477-0 (Version None)
Quarter: 2004Q4

REPORT INFORMATION
  Report Type: 
  Country: None (occurrence: None)
  Receive Date: 20041223
  Receipt Date: 20041027
  Transmission Date: 20050328
  Serious: Yes (Hospitalization)
  Sender: FDA-Public Use
  Company Number: US-AMGEN-US097491

PATIENT
  Sex: Female

DRUGS (2)
  1. ETANERCEPT [Suspect]
     Indication: PSORIASIS
     Route: 058
     Dates: start: 20040610, end: 20041021
  2. ETANERCEPT [Suspect]
     Route: 058
     Dates: start: 20040610, end: 20040830

REACTIONS (1)
  - BENIGN OVARIAN TUMOUR [None]
